FAERS Safety Report 19194198 (Version 1)
Quarter: 2021Q2

REPORT INFORMATION
  Report Type: Spontaneous
  Country: NO (occurrence: NO)
  Receive Date: 20210429
  Receipt Date: 20210429
  Transmission Date: 20210717
  Serious: Yes (Other)
  Sender: FDA-Public Use
  Company Number: NO-BRISTOL-MYERS SQUIBB COMPANY-BMS-2021-040218

PATIENT
  Age: 86 Year
  Sex: Female

DRUGS (2)
  1. ELIQUIS [Suspect]
     Active Substance: APIXABAN
     Indication: PRODUCT USED FOR UNKNOWN INDICATION
     Dosage: UNKNOWN DOSE
     Route: 048
  2. COMIRNATY [Suspect]
     Active Substance: TOZINAMERAN
     Indication: IMMUNISATION
     Dosage: DOSE NO. IN SERIES: 1 VACCINATION SITE: RIGHTARM, TIME:12:20
     Route: 030
     Dates: start: 20210310

REACTIONS (5)
  - Malaise [Recovered/Resolved with Sequelae]
  - Headache [Recovered/Resolved with Sequelae]
  - Cardiac fibrillation [Recovering/Resolving]
  - Fatigue [Recovered/Resolved with Sequelae]
  - Therapeutic product effect decreased [Recovering/Resolving]

NARRATIVE: CASE EVENT DATE: 202103
